FAERS Safety Report 16964265 (Version 1)
Quarter: 2019Q4

REPORT INFORMATION
  Report Type: Spontaneous
  Country: US (occurrence: US)
  Receive Date: 20191025
  Receipt Date: 20191025
  Transmission Date: 20200122
  Serious: Yes (Disabling)
  Sender: FDA-Public Use
  Company Number: None

PATIENT
  Age: 32 Year
  Sex: Female
  Weight: 103.5 kg

DRUGS (9)
  1. EXCEDRINE TENSION HEADACHE [Concomitant]
  2. METRONIDAZOLE (FLAGYL) 500 MG GENERIC [Suspect]
     Active Substance: METRONIDAZOLE
     Indication: VAGINAL INFECTION
     Dosage: ?          QUANTITY:14 TABLET(S);?
     Route: 048
     Dates: start: 20191022, end: 20191024
  3. METRONIDAZOLE VAGINAL GEL USP [Suspect]
     Active Substance: METRONIDAZOLE
     Indication: TRICHOMONIASIS
     Dosage: ?          QUANTITY:10 INJECTION(S);?
     Route: 067
     Dates: start: 20191022, end: 20191024
  4. METRONIDAZOLE (FLAGYL) 500 MG GENERIC [Suspect]
     Active Substance: METRONIDAZOLE
     Indication: TRICHOMONIASIS
     Dosage: ?          QUANTITY:14 TABLET(S);?
     Route: 048
     Dates: start: 20191022, end: 20191024
  5. ALBUTEROL INHALER [Concomitant]
     Active Substance: ALBUTEROL
  6. PROPANOLOL 20 MG [Concomitant]
  7. GABAPENTIN 900 MG [Concomitant]
  8. METRONIDAZOLE VAGINAL GEL USP [Suspect]
     Active Substance: METRONIDAZOLE
     Indication: VAGINAL INFECTION
     Dosage: ?          QUANTITY:10 INJECTION(S);?
     Route: 067
     Dates: start: 20191022, end: 20191024
  9. QVAR [Concomitant]
     Active Substance: BECLOMETHASONE DIPROPIONATE

REACTIONS (12)
  - Back pain [None]
  - Musculoskeletal stiffness [None]
  - Dizziness [None]
  - Irritability [None]
  - Hypoaesthesia [None]
  - Depression [None]
  - Flushing [None]
  - Vomiting [None]
  - Pyrexia [None]
  - Respiratory tract infection [None]
  - Pain [None]
  - Headache [None]

NARRATIVE: CASE EVENT DATE: 20191022
